FAERS Safety Report 5919059-5 (Version None)
Quarter: 2008Q4

REPORT INFORMATION
  Report Type: 
  Country: None (occurrence: None)
  Receive Date: 20081014
  Receipt Date: 20081014
  Transmission Date: 20090506
  Serious: Yes (Hospitalization)
  Sender: FDA-Public Use
  Company Number: None

PATIENT
  Age: 51 Year
  Sex: Male
  Weight: 63 kg

DRUGS (1)
  1. PHENYTOIN [Suspect]
     Indication: CONVULSION
     Dosage: MG OTHER PO
     Route: 048
     Dates: start: 20070522, end: 20080804

REACTIONS (3)
  - CONVULSION [None]
  - FALL [None]
  - RIB FRACTURE [None]
